FAERS Safety Report 7525367-7 (Version None)
Quarter: 2011Q2

REPORT INFORMATION
  Report Type: 
  Country: None (occurrence: None)
  Receive Date: 20110606
  Receipt Date: 20110531
  Transmission Date: 20111010
  Serious: Yes (Life-Threatening, Hospitalization, Other)
  Sender: FDA-Public Use
  Company Number: PL-NOVOPROD-329186

PATIENT
  Sex: Female
  Weight: 104 kg

DRUGS (1)
  1. LIRAGLUTIDE FLEXPEN [Suspect]
     Indication: TYPE 2 DIABETES MELLITUS

REACTIONS (3)
  - MYOCARDIAL ISCHAEMIA [None]
  - BLOOD PRESSURE INCREASED [None]
  - ANGINA UNSTABLE [None]
